FAERS Safety Report 6818119 (Version 3)
Quarter: 2014Q4

REPORT INFORMATION
  Report Type: Report from Study
  Country: SE (occurrence: SE)
  Receive Date: 20081121
  Receipt Date: 20141002
  Transmission Date: 20150529
  Serious: Yes (Death, Life-Threatening)
  Sender: FDA-Public Use
  Company Number: SE-ELI_LILLY_AND_COMPANY-SE200811002248

PATIENT
  Age: 74 Year
  Sex: Female

DRUGS (6)
  1. TRIOBE [Concomitant]
     Indication: VITAMIN B12 DEFICIENCY
     Dosage: 1 D/F, DAILY (1/D)
  2. TERIPARATIDE [Suspect]
     Active Substance: TERIPARATIDE
     Indication: OSTEOPOROSIS
     Dosage: 20 UG, QD
     Dates: start: 20070308, end: 20070510
  3. LAMOTRIGINE. [Concomitant]
     Active Substance: LAMOTRIGINE
     Dosage: 50 MG, EACH EVENING
     Dates: start: 20080602
  4. LAMOTRIGINE. [Concomitant]
     Active Substance: LAMOTRIGINE
     Indication: EPILEPSY
     Dosage: 25 MG, EACH MORNING
     Route: 065
     Dates: start: 20080602
  5. KALCIPOS [Concomitant]
     Active Substance: CALCIUM CARBONATE
     Indication: OSTEOPOROSIS
     Dosage: 1 D/F, 2/D
  6. OPTINATE [Concomitant]
     Active Substance: RISEDRONATE SODIUM
     Dosage: 35 MG, WEEKLY (1/W)

REACTIONS (2)
  - Epilepsy [Fatal]
  - Drowning [Fatal]

NARRATIVE: CASE EVENT DATE: 20081016
